FAERS Safety Report 9113174 (Version 5)
Quarter: 2013Q3

REPORT INFORMATION
  Report Type: Report from Study
  Country: US (occurrence: US)
  Receive Date: 20130211
  Receipt Date: 20130802
  Transmission Date: 20140515
  Serious: Yes (Death, Hospitalization)
  Sender: FDA-Public Use
  Company Number: US-BAYER-2012-121948

PATIENT
  Age: 51 Year
  Sex: Male
  Weight: 65.4 kg

DRUGS (18)
  1. REGORAFENIB [Suspect]
     Indication: COLORECTAL CANCER METASTATIC
     Dosage: 160 MG, QD
     Route: 048
     Dates: start: 20120918, end: 20120924
  2. REGORAFENIB [Suspect]
     Indication: COLORECTAL CANCER METASTATIC
     Dosage: 160 MG, QD
     Route: 048
     Dates: start: 20120918, end: 20120924
  3. REGORAFENIB [Suspect]
     Indication: COLORECTAL CANCER METASTATIC
     Dosage: 160 MG, QD
     Route: 048
     Dates: start: 20120918, end: 20120924
  4. REGORAFENIB [Suspect]
     Indication: COLORECTAL CANCER METASTATIC
     Dosage: 160 MG, QD
     Route: 048
     Dates: start: 20120929, end: 20121009
  5. REGORAFENIB [Suspect]
     Indication: COLORECTAL CANCER METASTATIC
     Dosage: 160 MG, QD
     Route: 048
     Dates: start: 20120929, end: 20121009
  6. REGORAFENIB [Suspect]
     Indication: COLORECTAL CANCER METASTATIC
     Dosage: 160 MG, QD
     Route: 048
     Dates: start: 20120929, end: 20121009
  7. REGORAFENIB [Suspect]
     Indication: COLORECTAL CANCER METASTATIC
     Dosage: 120 MG, QD
     Route: 048
     Dates: start: 20121016, end: 20121105
  8. REGORAFENIB [Suspect]
     Indication: COLORECTAL CANCER METASTATIC
     Dosage: 120 MG, QD
     Route: 048
     Dates: start: 20121016, end: 20121105
  9. REGORAFENIB [Suspect]
     Indication: COLORECTAL CANCER METASTATIC
     Dosage: 120 MG, QD
     Route: 048
     Dates: start: 20121016, end: 20121105
  10. ATENOLOL [Concomitant]
     Indication: HYPERTENSION
     Dosage: DAILY DOSE 50 MG
     Route: 048
     Dates: start: 2004
  11. LISINOPRIL [Concomitant]
     Indication: HYPERTENSION
     Dosage: DAILY DOSE 40 MG
     Route: 048
     Dates: start: 2004
  12. FELODIPINE [Concomitant]
     Indication: HYPERTENSION
     Dosage: DAILY DOSE 15 MG
     Route: 048
     Dates: start: 20121023
  13. COMPAZINE [Concomitant]
     Indication: HYPERTENSION
     Dosage: DAILY DOSE 10 MG
     Route: 048
     Dates: start: 2010
  14. KLOR-CON [Concomitant]
     Indication: HYPOKALAEMIA
     Dosage: DAILY DOSE 20 MEQ
     Route: 048
     Dates: start: 2011
  15. DEXAMETHASONE [Concomitant]
     Indication: STEROID THERAPY
     Dosage: DAILY DOSE 4 MG
     Route: 048
     Dates: start: 20111114
  16. OXYCONTIN [Concomitant]
     Indication: PAIN
     Dosage: DAILY DOSE 20 MG
     Route: 048
     Dates: start: 20121017
  17. RITALIN [Concomitant]
     Indication: APPETITE DISORDER
     Dosage: DAILY DOSE 10 MG
     Route: 048
     Dates: start: 2011
  18. OXYCODONE [Concomitant]
     Indication: PAIN
     Dosage: DAILY DOSE 5 MG
     Route: 048
     Dates: start: 20121017

REACTIONS (1)
  - Renal failure acute [Recovered/Resolved]
